FAERS Safety Report 4892999-4 (Version None)
Quarter: 2005Q4

REPORT INFORMATION
  Report Type: 
  Country: None (occurrence: None)
  Receive Date: 20051220
  Receipt Date: 20050829
  Transmission Date: 20060501
  Serious: Yes (Other)
  Sender: FDA-Public Use
  Company Number: 416030

PATIENT
  Age: 75 Year
  Sex: Female
  Weight: 91.2 kg

DRUGS (4)
  1. BONIVA [Suspect]
     Indication: OSTEOPOROSIS
     Dosage: 150 UNIT 1 PER MONTH ORAL
     Route: 048
     Dates: start: 20050705, end: 20050705
  2. VASOTEC [Concomitant]
  3. PRAVACHOL [Concomitant]
  4. HCTZ (HYDROCHLOROTHIAZIDE) [Concomitant]

REACTIONS (1)
  - PHOTOSENSITIVITY REACTION [None]
